FAERS Safety Report 23718633 (Version 1)
Quarter: 2024Q2

REPORT INFORMATION
  Report Type: Spontaneous
  Country: US (occurrence: US)
  Receive Date: 20240408
  Receipt Date: 20240408
  Transmission Date: 20240716
  Serious: No
  Sender: FDA-Public Use
  Company Number: DE-BoehringerIngelheim-2024-BI-019605

PATIENT
  Age: 23 Year
  Sex: Male

DRUGS (5)
  1. EMPAGLIFLOZIN [Suspect]
     Active Substance: EMPAGLIFLOZIN
     Indication: Myocarditis
     Dosage: FORM STRENGTH: 10 MILLIGRAM
     Dates: start: 202403
  2. EMPAGLIFLOZIN [Suspect]
     Active Substance: EMPAGLIFLOZIN
     Indication: Cardiac failure
  3. BISOPROLOL [Concomitant]
     Active Substance: BISOPROLOL\BISOPROLOL FUMARATE
     Indication: Myocarditis
     Dates: start: 202403
  4. Colchicine 500 mg [Concomitant]
     Indication: Myocarditis
     Dates: start: 202403
  5. Entresto 50 mg [Concomitant]
     Indication: Myocarditis
     Dates: start: 202403

REACTIONS (1)
  - Drug ineffective [Unknown]
